FAERS Safety Report 9419398 (Version 7)
Quarter: 2014Q2

REPORT INFORMATION
  Report Type: Report from Study
  Country: GB (occurrence: GB)
  Receive Date: 20130725
  Receipt Date: 20140422
  Transmission Date: 20141212
  Serious: Yes (Hospitalization)
  Sender: FDA-Public Use
  Company Number: GB-ROCHE-1252512

PATIENT
  Age: 88 Year
  Sex: Male
  Weight: 79 kg

DRUGS (19)
  1. RITUXIMAB [Suspect]
     Indication: B-CELL LYMPHOMA
     Dosage: DATE OF MOST RECENT DOSE OF RITUXIMAB PRIOR TO AE ONSET: 22/JUL/2013, VOLUME OF LAST RITUXIMAB TAKEN
     Route: 042
     Dates: start: 20130613
  2. BENDAMUSTINE [Suspect]
     Indication: B-CELL LYMPHOMA
     Dosage: DOSE OF LAST BENDAMUSTINE TAKEN; 190 MG, DATE OF MOST RECENT DOSE 14/JUN/2013
     Route: 042
     Dates: start: 20130613
  3. FRUSEMIDE [Concomitant]
     Indication: FLUID RETENTION
  4. ALLOPURINOL [Concomitant]
     Route: 065
     Dates: end: 20130615
  5. ALLOPURINOL [Concomitant]
     Route: 065
     Dates: start: 20130723, end: 20130723
  6. ACICLOVIR [Concomitant]
     Route: 065
     Dates: start: 20130613
  7. FLUCONAZOLE [Concomitant]
     Route: 065
     Dates: start: 20130613
  8. CO-TRIMOXAZOLE [Concomitant]
     Route: 065
     Dates: start: 20130613, end: 20130718
  9. METOCLOPRAMIDE [Concomitant]
     Indication: NAUSEA
     Route: 065
     Dates: start: 20130628, end: 20130628
  10. METOCLOPRAMIDE [Concomitant]
     Indication: VOMITING
  11. DIGOXIN [Concomitant]
     Indication: ATRIAL FIBRILLATION
     Route: 065
     Dates: start: 20130628
  12. AMIKACIN [Concomitant]
     Indication: INFECTION
     Route: 065
     Dates: start: 20130628, end: 20130628
  13. PARACETAMOL [Concomitant]
     Indication: PYREXIA
     Route: 042
     Dates: start: 20130628, end: 20130628
  14. ASPIRIN [Concomitant]
     Indication: ANTICOAGULANT THERAPY
     Route: 065
     Dates: start: 20130630, end: 20130709
  15. CO-AMOXICLAV [Concomitant]
     Route: 065
     Dates: start: 20130701, end: 20130703
  16. OMEPRAZOLE [Concomitant]
     Indication: ANTICOAGULANT THERAPY
     Route: 065
     Dates: start: 20130701
  17. LENOGRASTIM [Concomitant]
     Indication: NEUTROPHIL COUNT DECREASED
     Route: 065
     Dates: start: 20130709, end: 20130713
  18. LENOGRASTIM [Concomitant]
     Indication: NEUTROPENIA
     Route: 065
     Dates: start: 20130723, end: 20130729
  19. ELOCON OINTMENT [Concomitant]
     Indication: DRY SKIN
     Route: 065
     Dates: start: 20130710, end: 20130724

REACTIONS (2)
  - Syncope [Recovered/Resolved]
  - Infusion related reaction [Recovered/Resolved]
